FAERS Safety Report 7149288-7 (Version None)
Quarter: 2010Q4

REPORT INFORMATION
  Report Type: 
  Country: None (occurrence: None)
  Receive Date: 20101209
  Receipt Date: 20101130
  Transmission Date: 20110411
  Serious: Yes (Hospitalization)
  Sender: FDA-Public Use
  Company Number: DE-ASTRAZENECA-2010SE56753

PATIENT
  Age: 68 Year
  Sex: Male
  Weight: 57.5 kg

DRUGS (16)
  1. BELOC ZOK [Suspect]
     Indication: CORONARY ARTERY DISEASE
     Route: 048
     Dates: start: 19980101
  2. INSULIN ACTRAPHANE [Interacting]
     Indication: TYPE 1 DIABETES MELLITUS
     Dosage: INSULINPUMPE
     Route: 058
     Dates: start: 19500101
  3. SANDIMMUNE [Concomitant]
     Indication: RENAL TRANSPLANT
     Route: 048
     Dates: start: 19900101
  4. IMUREK [Concomitant]
     Indication: RENAL TRANSPLANT
     Route: 048
     Dates: start: 19900101
  5. URBASON [Concomitant]
     Indication: RENAL TRANSPLANT
     Route: 048
     Dates: start: 19900101
  6. ISCOVER [Concomitant]
     Indication: CORONARY ARTERY DISEASE
     Route: 048
     Dates: start: 19980101
  7. CARDULAR PP [Concomitant]
     Indication: HYPERTENSION
     Route: 048
     Dates: start: 19980101
  8. ZOCOR [Concomitant]
     Indication: HYPERCHOLESTEROLAEMIA
     Route: 048
     Dates: start: 19980101
  9. FELODIPINE [Concomitant]
     Indication: CORONARY ARTERY DISEASE
     Route: 048
     Dates: start: 19980101
  10. FUROSEMIDE [Concomitant]
     Indication: HYPERTENSION
     Route: 048
     Dates: start: 19900101
  11. RANITIDINE [Concomitant]
     Indication: PROPHYLAXIS AGAINST GASTROINTESTINAL ULCER
     Route: 048
     Dates: start: 19980101
  12. DELIX [Concomitant]
     Indication: CORONARY ARTERY DISEASE
     Route: 048
     Dates: start: 19980101
  13. CALCIUM D3 ^STADA^ [Concomitant]
     Indication: OSTEOPOROSIS
     Route: 048
     Dates: start: 20050101
  14. BENZBROMARONE [Concomitant]
     Indication: HYPERURICAEMIA
     Route: 048
     Dates: start: 19900101
  15. BONDIOL [Concomitant]
     Indication: OSTEOPOROSIS
     Route: 048
     Dates: start: 20050101
  16. BONIVA [Concomitant]
     Indication: OSTEOPOROSIS
     Dosage: INFUSION IN EACH QUARTER
     Route: 058
     Dates: start: 20050101

REACTIONS (2)
  - DRUG INTERACTION [None]
  - HYPOGLYCAEMIA [None]
